FAERS Safety Report 12395386 (Version 1)
Quarter: 2016Q2

REPORT INFORMATION
  Report Type: Spontaneous
  Country: US (occurrence: US)
  Receive Date: 20160523
  Receipt Date: 20160523
  Transmission Date: 20160815
  Serious: No
  Sender: FDA-Public Use
  Company Number: US-GLAXOSMITHKLINE-US2016064453

PATIENT
  Age: 51 Year
  Sex: Female

DRUGS (2)
  1. FLOVENT [Suspect]
     Active Substance: FLUTICASONE PROPIONATE
     Indication: BRONCHITIS
     Dosage: UNK
     Dates: start: 20160311, end: 20160328
  2. PREDNISONE. [Concomitant]
     Active Substance: PREDNISONE

REACTIONS (4)
  - Dry mouth [Not Recovered/Not Resolved]
  - Periodontal disease [Not Recovered/Not Resolved]
  - Dysgeusia [Not Recovered/Not Resolved]
  - Aptyalism [Not Recovered/Not Resolved]
